FAERS Safety Report 8595936-4 (Version None)
Quarter: 2012Q3

REPORT INFORMATION
  Report Type: 
  Country: None (occurrence: None)
  Receive Date: 20120815
  Receipt Date: 19910325
  Transmission Date: 20120928
  Serious: Yes (Death, Life-Threatening)
  Sender: FDA-Public Use
  Company Number: US-ROCHE-1100611

PATIENT
  Age: 48 Year
  Sex: Female

DRUGS (2)
  1. ACTIVASE [Suspect]
     Indication: ACUTE MYOCARDIAL INFARCTION
     Route: 040
     Dates: start: 19900713, end: 19900713
  2. ACTIVASE [Suspect]
     Indication: CARDIAC ARREST

REACTIONS (1)
  - DEATH [None]
